FAERS Safety Report 13321581 (Version 1)
Quarter: 2017Q1

REPORT INFORMATION
  Report Type: Spontaneous
  Country: US (occurrence: US)
  Receive Date: 20170310
  Receipt Date: 20170310
  Transmission Date: 20170428
  Serious: Yes (Hospitalization)
  Sender: FDA-Public Use
  Company Number: None

PATIENT
  Age: 58 Year
  Sex: Female

DRUGS (15)
  1. ATIVAN [Concomitant]
     Active Substance: LORAZEPAM
  2. ZOMETA [Concomitant]
     Active Substance: ZOLEDRONIC ACID
  3. CANNABIS OIL [Concomitant]
  4. PEMBROLIZUMAB  200 MG [Suspect]
     Active Substance: PEMBROLIZUMAB
     Indication: METASTASES TO MENINGES
     Route: 042
     Dates: start: 20161129
  5. IMODIUM [Concomitant]
     Active Substance: LOPERAMIDE HYDROCHLORIDE
  6. MULTIVITAMIN [Concomitant]
     Active Substance: VITAMINS
  7. PICRORHIZA [Concomitant]
  8. AGARICUZ BLAZEI [Concomitant]
  9. TRAMADOL. [Concomitant]
     Active Substance: TRAMADOL
  10. POLY-MVA [Concomitant]
  11. PREGABALIN. [Concomitant]
     Active Substance: PREGABALIN
  12. VITAMIN D3 [Concomitant]
     Active Substance: CHOLECALCIFEROL
  13. LISINOPRIL. [Concomitant]
     Active Substance: LISINOPRIL
  14. CARVEDILOL. [Concomitant]
     Active Substance: CARVEDILOL
  15. FERROUS SULFATE. [Concomitant]
     Active Substance: FERROUS SULFATE

REACTIONS (2)
  - Seizure [None]
  - Radiculopathy [None]

NARRATIVE: CASE EVENT DATE: 20170308
